FAERS Safety Report 4827275-9 (Version None)
Quarter: 2005Q4

REPORT INFORMATION
  Report Type: 
  Country: None (occurrence: None)
  Receive Date: 20051114
  Receipt Date: 20051109
  Transmission Date: 20060501
  Serious: Yes (Life-Threatening, Hospitalization)
  Sender: FDA-Public Use
  Company Number: 2005AP05804

PATIENT
  Age: 29319 Day
  Sex: Male
  Weight: 84 kg

DRUGS (8)
  1. OMEPRAZOLE [Suspect]
     Indication: MYOCARDIAL ISCHAEMIA
     Route: 048
     Dates: start: 20050528
  2. FLOXACILLIN SODIUM [Suspect]
     Indication: SEPSIS
     Route: 048
     Dates: start: 20050614
  3. FLOXACILLIN SODIUM [Suspect]
     Route: 042
     Dates: start: 20050615, end: 20050626
  4. PLENDIL [Concomitant]
     Indication: DIABETES MELLITUS
  5. CARVEDILOL HYDROCHLORIDE [Concomitant]
  6. ALLOPURINOL [Concomitant]
  7. AMIODARONE HYDROCHLORIDE [Concomitant]
  8. ATORVASTATIN CALCIUM [Concomitant]

REACTIONS (2)
  - NEPHRITIS ALLERGIC [None]
  - RENAL FAILURE ACUTE [None]
